FAERS Safety Report 10307410 (Version 1)
Quarter: 2014Q3

REPORT INFORMATION
  Report Type: Spontaneous
  Country: US (occurrence: None)
  Receive Date: 20140714
  Receipt Date: 20140714
  Transmission Date: 20150326
  Serious: Yes (Other)
  Sender: FDA-Public Use
  Company Number: None

PATIENT
  Age: 35 Year
  Sex: Female
  Weight: 106.6 kg

DRUGS (2)
  1. REMICADE [Suspect]
     Active Substance: INFLIXIMAB
     Indication: SARCOIDOSIS
     Dosage: 570MG  EVERY 6 WEEKS  INTO A VEIN
     Route: 042
     Dates: start: 20131017, end: 20140529
  2. REMICADE [Suspect]
     Active Substance: INFLIXIMAB
     Indication: RHEUMATOID ARTHRITIS
     Dosage: 570MG  EVERY 6 WEEKS  INTO A VEIN
     Route: 042
     Dates: start: 20131017, end: 20140529

REACTIONS (6)
  - Rash generalised [None]
  - Dyspnoea [None]
  - Syncope [None]
  - Urticaria [None]
  - Infusion related reaction [None]
  - Chest discomfort [None]

NARRATIVE: CASE EVENT DATE: 20140527
